FAERS Safety Report 9149162 (Version 1)
Quarter: 2013Q1

REPORT INFORMATION
  Report Type: Spontaneous
  Country: US (occurrence: US)
  Receive Date: 20130308
  Receipt Date: 20130308
  Transmission Date: 20140127
  Serious: No
  Sender: FDA-Public Use
  Company Number: US-ENDO PHARMACEUTICALS INC.-OPCR20121827

PATIENT
  Sex: Male

DRUGS (3)
  1. OPANA ER 20MG [Suspect]
     Indication: BACK PAIN
     Route: 048
     Dates: start: 201204
  2. OPANA ER 20MG [Concomitant]
     Indication: BACK PAIN
     Route: 048
     Dates: start: 2007, end: 201204
  3. OXYCODONE [Concomitant]
     Indication: BREAKTHROUGH PAIN
     Route: 048

REACTIONS (5)
  - Painful ejaculation [Not Recovered/Not Resolved]
  - Dry mouth [Not Recovered/Not Resolved]
  - Withdrawal syndrome [Not Recovered/Not Resolved]
  - Drug effect delayed [Not Recovered/Not Resolved]
  - Drug effect decreased [Not Recovered/Not Resolved]
